FAERS Safety Report 25010218 (Version 1)
Quarter: 2025Q1

REPORT INFORMATION
  Report Type: Spontaneous
  Country: IN (occurrence: None)
  Receive Date: 20250225
  Receipt Date: 20250225
  Transmission Date: 20250408
  Serious: Yes (Other)
  Sender: INCYTE
  Company Number: IN-002147023-NVSC2025IN030651

PATIENT

DRUGS (1)
  1. RUXOLITINIB [Suspect]
     Active Substance: RUXOLITINIB
     Indication: Graft versus host disease
     Dosage: 5 MG, BID

REACTIONS (2)
  - Product prescribing error [Unknown]
  - Congenital aplastic anaemia [Unknown]
